FAERS Safety Report 8150962-4 (Version None)
Quarter: 2012Q1

REPORT INFORMATION
  Report Type: 
  Country: None (occurrence: None)
  Receive Date: 20120220
  Receipt Date: 20120207
  Transmission Date: 20120608
  Serious: Yes (Hospitalization)
  Sender: FDA-Public Use
  Company Number: KR-COVIDIEN/TYCO HEALTHCARE/MALLINCKRODT-T201200636

PATIENT
  Sex: Male
  Weight: 76.1 kg

DRUGS (15)
  1. EXALGO [Suspect]
     Dosage: 16 MG, QD
     Route: 048
     Dates: start: 20120125, end: 20120201
  2. TANTUM                             /00052302/ [Concomitant]
     Indication: MUCOSAL INFLAMMATION
     Dosage: 100 ML, UNK
     Dates: start: 20120207
  3. SULFOLASE [Concomitant]
     Indication: PRODUCTIVE COUGH
     Dosage: 300 MG, UNK
  4. ACECLOFENAC [Concomitant]
     Indication: PAIN MANAGEMENT
     Dosage: 100 MG, 3 IN 1 DAY
     Route: 065
     Dates: start: 20120131
  5. FUROSEMIDE [Concomitant]
     Indication: HYPERTENSION
     Dosage: 40 MG, UNK
     Dates: start: 20120119, end: 20120125
  6. PIPERACILLIN AND TAZOBACTAM [Concomitant]
     Indication: SKIN TEST
     Dosage: 4.5 G, UNK
     Dates: start: 20120206, end: 20120206
  7. EXALGO [Suspect]
     Indication: PAIN MANAGEMENT
     Dosage: 24 MG, QD
     Route: 048
     Dates: start: 20120202
  8. DEXAMETHASONE [Concomitant]
     Indication: HYPERSENSITIVITY
     Dosage: 5 MG, UNK
  9. PIPERACILLIN AND TAZOBACTAM [Concomitant]
     Indication: PRODUCTIVE COUGH
     Dosage: 4.5 G, UNK
     Dates: start: 20120207
  10. BROMHEXINE HYDROCHLORIDE [Concomitant]
     Dosage: 4 MG, UNK
     Dates: start: 20120207
  11. COMBIFLEX PERI [Concomitant]
     Indication: MEDICAL DIET
     Dosage: 1920 ML, UNK
     Dates: start: 20120206, end: 20120206
  12. EXALGO [Suspect]
     Dosage: 4 MG, QD
     Route: 048
     Dates: start: 20120116, end: 20120124
  13. LEVOTUSS [Concomitant]
     Indication: PRODUCTIVE COUGH
     Dosage: 30 ML, UNK
     Dates: start: 20120131
  14. BROMHEXINE HYDROCHLORIDE [Concomitant]
     Indication: PRODUCTIVE COUGH
     Dosage: 12 MG, UNK
     Dates: start: 20120206, end: 20120206
  15. CURAN [Concomitant]
     Indication: GASTRIC ULCER
     Dosage: 450 MG, UNK
     Dates: start: 20120131

REACTIONS (3)
  - PAIN [None]
  - SPUTUM INCREASED [None]
  - DYSPNOEA [None]
